FAERS Safety Report 4687688-5 (Version None)
Quarter: 2005Q2

REPORT INFORMATION
  Report Type: 
  Country: None (occurrence: None)
  Receive Date: 20050608
  Receipt Date: 20050608
  Transmission Date: 20051028
  Serious: Yes (Hospitalization)
  Sender: FDA-Public Use
  Company Number: None

PATIENT
  Sex: Female

DRUGS (2)
  1. VALIUM [Suspect]
  2. ATIVAN [Suspect]

REACTIONS (2)
  - RESPIRATORY DEPRESSION [None]
  - SEDATION [None]
